FAERS Safety Report 6478068-0 (Version None)
Quarter: 2009Q4

REPORT INFORMATION
  Report Type: 
  Country: None (occurrence: None)
  Receive Date: 20091207
  Receipt Date: 20091201
  Transmission Date: 20100525
  Serious: Yes (Hospitalization)
  Sender: FDA-Public Use
  Company Number: US-BAYER-200932017NA

PATIENT
  Age: 80 Year
  Sex: Female
  Weight: 70 kg

DRUGS (7)
  1. NEXAVAR [Suspect]
     Indication: HEPATIC NEOPLASM MALIGNANT
     Dosage: TOTAL DAILY DOSE: 400 MG  UNIT DOSE: 200 MG
     Route: 048
     Dates: start: 20090824, end: 20091004
  2. DYAZIDE [Concomitant]
     Dates: end: 20091001
  3. TOPROLOL [Concomitant]
  4. BP MED [Concomitant]
  5. NEXIUM [Concomitant]
     Dosage: TOTAL DAILY DOSE: 40 MG
  6. MULTI-VITAMIN [Concomitant]
  7. SYNTHROID [Concomitant]
     Dosage: TOTAL DAILY DOSE: 75 ?G

REACTIONS (13)
  - BLOOD POTASSIUM DECREASED [None]
  - CLUMSINESS [None]
  - CONFUSIONAL STATE [None]
  - DIARRHOEA [None]
  - ERYTHEMA [None]
  - HYPOAESTHESIA [None]
  - MALIGNANT HYPERTENSION [None]
  - NIPPLE PAIN [None]
  - PAIN IN JAW [None]
  - PARAESTHESIA [None]
  - PRURITUS [None]
  - THROMBOCYTOPENIA [None]
  - VOMITING [None]
